FAERS Safety Report 13870259 (Version 1)
Quarter: 2017Q3

REPORT INFORMATION
  Report Type: Spontaneous
  Country: DE (occurrence: DE)
  Receive Date: 20170815
  Receipt Date: 20170815
  Transmission Date: 20171127
  Serious: Yes (Other)
  Sender: FDA-Public Use
  Company Number: DE-MERCK KGAA-2024654

PATIENT
  Age: 74 Year
  Sex: Female

DRUGS (6)
  1. NOVOTHYROX [Suspect]
     Active Substance: LEVOTHYROXINE SODIUM
  2. VITAMIN D [Suspect]
     Active Substance: CHOLECALCIFEROL
  3. NOVOTHYROX [Suspect]
     Active Substance: LEVOTHYROXINE SODIUM
  4. NOVOTHYROX [Suspect]
     Active Substance: LEVOTHYROXINE SODIUM
     Indication: POST PROCEDURAL HYPOTHYROIDISM
  5. VITAMIN D [Suspect]
     Active Substance: CHOLECALCIFEROL
  6. NOVOTHYROX [Suspect]
     Active Substance: LEVOTHYROXINE SODIUM

REACTIONS (19)
  - Thyroid function test abnormal [Recovering/Resolving]
  - Incontinence [Unknown]
  - Muscle strain [Not Recovered/Not Resolved]
  - Drug interaction [Unknown]
  - Confusional state [Not Recovered/Not Resolved]
  - Decreased activity [Unknown]
  - Muscular weakness [Not Recovered/Not Resolved]
  - Tremor [Not Recovered/Not Resolved]
  - Drug dose omission [Recovered/Resolved]
  - Erythema [Not Recovered/Not Resolved]
  - Restlessness [Unknown]
  - Dizziness [Not Recovered/Not Resolved]
  - Miosis [Not Recovered/Not Resolved]
  - Off label use [Unknown]
  - Tongue paralysis [Not Recovered/Not Resolved]
  - Dementia [Not Recovered/Not Resolved]
  - Feeling abnormal [Not Recovered/Not Resolved]
  - Chromaturia [Not Recovered/Not Resolved]
  - Aggression [Not Recovered/Not Resolved]
